FAERS Safety Report 10095694 (Version 1)
Quarter: 2014Q2

REPORT INFORMATION
  Report Type: Spontaneous
  Country: US (occurrence: US)
  Receive Date: 20140422
  Receipt Date: 20140422
  Transmission Date: 20141212
  Serious: No
  Sender: FDA-Public Use
  Company Number: US-GILEAD-2013-0072409

PATIENT
  Sex: Female

DRUGS (4)
  1. LETAIRIS [Suspect]
     Indication: PRODUCT USED FOR UNKNOWN INDICATION
     Dosage: 5 MG, QD
     Route: 048
     Dates: start: 20080324
  2. CARDIZEM                           /00489701/ [Concomitant]
  3. TOPROL [Concomitant]
  4. VASOTEC                            /00574902/ [Concomitant]

REACTIONS (1)
  - Palpitations [Unknown]
